FAERS Safety Report 7750943-6 (Version None)
Quarter: 2011Q3

REPORT INFORMATION
  Report Type: 
  Country: None (occurrence: None)
  Receive Date: 20110914
  Receipt Date: 20110905
  Transmission Date: 20111222
  Serious: Yes (Hospitalization)
  Sender: FDA-Public Use
  Company Number: KR-ELI_LILLY_AND_COMPANY-KR201109002326

PATIENT
  Age: 50 Year
  Sex: Female
  Weight: 44 kg

DRUGS (3)
  1. HUMALOG MIX 75/25 [Suspect]
     Dosage: 20 U, EACH EVENING
     Route: 058
     Dates: start: 20110601
  2. HUMALOG MIX 75/25 [Suspect]
     Indication: TYPE 2 DIABETES MELLITUS
     Dosage: 28 U, EACH MORNING
     Route: 058
     Dates: start: 20110601
  3. ANTIHYPERTENSIVES [Concomitant]
     Indication: HYPERTENSION
     Dosage: UNK

REACTIONS (4)
  - DIZZINESS [None]
  - HYPERTHERMIA [None]
  - HEADACHE [None]
  - ENCEPHALITIS [None]
